FAERS Safety Report 8152682-9 (Version None)
Quarter: 2012Q1

REPORT INFORMATION
  Report Type: 
  Country: None (occurrence: None)
  Receive Date: 20120221
  Receipt Date: 20120210
  Transmission Date: 20120608
  Serious: Yes (Other)
  Sender: FDA-Public Use
  Company Number: US-GENZYME-FABR-1002253

PATIENT
  Sex: Female

DRUGS (2)
  1. FABRAZYME [Suspect]
     Indication: FABRY'S DISEASE
     Dosage: UNK
     Route: 042
  2. CLARITIN [Concomitant]
     Indication: PREMEDICATION
     Route: 065

REACTIONS (3)
  - TYPE I HYPERSENSITIVITY [None]
  - THROAT TIGHTNESS [None]
  - PRURITUS [None]
